FAERS Safety Report 12969450 (Version 2)
Quarter: 2016Q4

REPORT INFORMATION
  Report Type: Report from Study
  Country: BR (occurrence: BR)
  Receive Date: 20161123
  Receipt Date: 20161208
  Transmission Date: 20170207
  Serious: Yes (Hospitalization, Other)
  Sender: FDA-Public Use
  Company Number: PHHY2016BR160095

PATIENT
  Age: 8 Year
  Sex: Male
  Weight: 27.7 kg

DRUGS (6)
  1. CARBAMAZEPINA [Concomitant]
     Active Substance: CARBAMAZEPINE
     Indication: SEIZURE
     Dosage: 200 MG, UNK (? TABLET EVERY 12 HOURS)
     Route: 048
  2. PEN-VE-ORAL [Concomitant]
     Active Substance: PENICILLIN V POTASSIUM
     Indication: PRODUCT USED FOR UNKNOWN INDICATION
     Dosage: 500 MG, UNK (1/2 TABLET EVERY 12 HOURS)
     Route: 048
  3. GARDENAL [Concomitant]
     Active Substance: PHENOBARBITAL
     Indication: SEIZURE
     Dosage: 40 MG, UNK (120 DROPS A DAY)
     Route: 048
  4. EXJADE [Suspect]
     Active Substance: DEFERASIROX
     Indication: SICKLE CELL ANAEMIA
     Dosage: 625 MG, QD (1 TABLET OF 500MG AND 1 TABLET OF 125MG)
     Route: 048
     Dates: start: 2013
  5. APO-FOLIC ACID [Concomitant]
     Active Substance: FOLIC ACID
     Indication: SICKLE CELL ANAEMIA
     Dosage: 5 MG, UNK (1 TABLET A DAY)
     Route: 048
  6. OMEPRAZOL [Concomitant]
     Active Substance: OMEPRAZOLE
     Indication: PRODUCT USED FOR UNKNOWN INDICATION
     Dosage: 20 MG, UNK (1 TABLET A DAY)
     Route: 048

REACTIONS (6)
  - Pyrexia [Recovered/Resolved]
  - Pulmonary oedema [Recovered/Resolved]
  - Sickle cell anaemia with crisis [Recovered/Resolved]
  - Weight decreased [Recovering/Resolving]
  - Splenomegaly [Recovered/Resolved]
  - Infection [Recovered/Resolved]

NARRATIVE: CASE EVENT DATE: 201512
